FAERS Safety Report 9056543 (Version 3)
Quarter: 2013Q1

REPORT INFORMATION
  Report Type: Spontaneous
  Country: FR (occurrence: FR)
  Receive Date: 20130204
  Receipt Date: 20130328
  Transmission Date: 20140127
  Serious: Yes (Death, Hospitalization)
  Sender: FDA-Public Use
  Company Number: FR-GLAXOSMITHKLINE-B0862311A

PATIENT
  Age: 66 None
  Sex: Male

DRUGS (8)
  1. ARIXTRA [Suspect]
     Indication: PRODUCT USED FOR UNKNOWN INDICATION
     Route: 058
     Dates: start: 2012, end: 20130103
  2. KARDEGIC [Suspect]
     Indication: ARTERITIS
     Dosage: 100MG PER DAY
     Route: 048
     Dates: start: 1990
  3. NEBIVOLOL [Concomitant]
  4. TAREG [Concomitant]
  5. MOPRAL [Concomitant]
  6. KALEORID [Concomitant]
     Dosage: 2UNIT THREE TIMES PER DAY
  7. VITAMIN B1 B6 [Concomitant]
     Dosage: 1UNIT THREE TIMES PER DAY
  8. XATRAL [Concomitant]
     Dosage: 1UNIT PER DAY

REACTIONS (9)
  - Subdural haematoma [Fatal]
  - Fall [Unknown]
  - Confusional state [Unknown]
  - Vomiting projectile [Unknown]
  - Hypertension [Unknown]
  - Mydriasis [Unknown]
  - Cough [Unknown]
  - Pupils unequal [Unknown]
  - Hypotension [Unknown]
